FAERS Safety Report 4629811-4 (Version None)
Quarter: 2005Q2

REPORT INFORMATION
  Report Type: 
  Country: None (occurrence: None)
  Receive Date: 20050407
  Receipt Date: 20050330
  Transmission Date: 20051028
  Serious: Yes (Hospitalization)
  Sender: FDA-Public Use
  Company Number: CAN-2002-000635

PATIENT
  Age: 69 Year
  Sex: Female

DRUGS (5)
  1. BETASERON [Suspect]
     Indication: MULTIPLE SCLEROSIS
     Dosage: 8 M IU, EVERY 2D, SUBCUTANEOUS
     Route: 058
     Dates: start: 19971201
  2. LUVOX [Concomitant]
  3. BACLOFEN [Concomitant]
  4. PREMARIN [Concomitant]
  5. PROVERA [Concomitant]

REACTIONS (1)
  - HIP FRACTURE [None]
